FAERS Safety Report 20938937 (Version 1)
Quarter: 2022Q2

REPORT INFORMATION
  Report Type: Spontaneous
  Country: TN (occurrence: TN)
  Receive Date: 20220609
  Receipt Date: 20220609
  Transmission Date: 20220721
  Serious: Yes (Life-Threatening, Hospitalization, Other)
  Sender: FDA-Public Use
  Company Number: TN-SLATE RUN PHARMACEUTICALS-22TN001129

PATIENT

DRUGS (10)
  1. AZITHROMYCIN [Suspect]
     Active Substance: AZITHROMYCIN
     Indication: Maternal exposure during pregnancy
     Dosage: UNK
     Dates: start: 20200919
  2. OXYGEN [Concomitant]
     Active Substance: OXYGEN
     Indication: Maternal exposure timing unspecified
     Dosage: 12 L/MIN
     Dates: start: 20200919
  3. AMOXICILLIN\CLAVULANIC ACID [Concomitant]
     Active Substance: AMOXICILLIN\CLAVULANIC ACID
     Indication: Maternal exposure timing unspecified
     Dosage: UNK
     Dates: start: 20200919
  4. DEXAMETHASONE [Concomitant]
     Active Substance: DEXAMETHASONE
     Indication: Maternal exposure timing unspecified
     Dosage: UNK
     Dates: start: 20200919
  5. VITAMIN C [Concomitant]
     Active Substance: ASCORBIC ACID
     Indication: Maternal exposure timing unspecified
     Dosage: UNK
     Dates: start: 20200919
  6. ZINC [Concomitant]
     Active Substance: ZINC
     Indication: Maternal exposure timing unspecified
     Dosage: UNK
     Dates: start: 20200919
  7. ENOXAPARIN [Concomitant]
     Active Substance: ENOXAPARIN
     Indication: Maternal exposure timing unspecified
     Dosage: UNK
     Dates: start: 20200919
  8. CISATRACURIUM [Concomitant]
     Active Substance: CISATRACURIUM
     Indication: Maternal exposure timing unspecified
     Dosage: 37.7 MG/H
     Dates: start: 20200920
  9. NITRIC OXIDE [Concomitant]
     Active Substance: NITRIC OXIDE
     Indication: Maternal exposure timing unspecified
     Dosage: 0.4-0.6 PPM
     Dates: start: 20200920
  10. OXYTOCIN [Concomitant]
     Active Substance: OXYTOCIN
     Indication: Maternal exposure timing unspecified
     Dosage: 10 INTERNATIONAL UNIT
     Dates: start: 20201006

REACTIONS (5)
  - Neonatal respiratory distress [Recovering/Resolving]
  - Premature baby [Recovering/Resolving]
  - Pneumonia bacterial [Recovering/Resolving]
  - Apgar score low [Unknown]
  - Foetal exposure during pregnancy [Recovered/Resolved]

NARRATIVE: CASE EVENT DATE: 20200919
